FAERS Safety Report 4515046-2 (Version None)
Quarter: 2004Q4

REPORT INFORMATION
  Report Type: 
  Country: None (occurrence: None)
  Receive Date: 20041129
  Receipt Date: 20041129
  Transmission Date: 20050328
  Serious: Yes (Life-Threatening, Congenital Anomaly)
  Sender: FDA-Public Use
  Company Number: None

PATIENT
  Age: 46 Year
  Sex: Male
  Weight: 106.5953 kg

DRUGS (4)
  1. CRESTOR [Suspect]
     Indication: BLOOD TRIGLYCERIDES INCREASED
     Dosage: 1 DAILY ORAL
     Route: 048
     Dates: start: 20040507, end: 20041119
  2. CRESTOR [Suspect]
     Indication: LDL/HDL RATIO INCREASED
     Dosage: 1 DAILY ORAL
     Route: 048
     Dates: start: 20040507, end: 20041119
  3. TRICOR [Suspect]
     Indication: BLOOD TRIGLYCERIDES INCREASED
     Dosage: 1 DAILY ORAL
     Route: 048
     Dates: start: 20030627, end: 20041119
  4. TRICOR [Suspect]
     Indication: LDL/HDL RATIO INCREASED
     Dosage: 1 DAILY ORAL
     Route: 048
     Dates: start: 20030627, end: 20041119

REACTIONS (7)
  - CONTUSION [None]
  - DYSSTASIA [None]
  - FALL [None]
  - HAEMORRHAGE [None]
  - MOVEMENT DISORDER [None]
  - MUSCLE CRAMP [None]
  - MYALGIA [None]
